FAERS Safety Report 14066243 (Version 1)
Quarter: 2017Q4

REPORT INFORMATION
  Report Type: Spontaneous
  Country: US (occurrence: None)
  Receive Date: 20171007
  Receipt Date: 20171007
  Transmission Date: 20180321
  Serious: No
  Sender: FDA-Public Use
  Company Number: None

PATIENT
  Age: 74 Year
  Sex: Female

DRUGS (1)
  1. ZEPATIER [Suspect]
     Active Substance: ELBASVIR\GRAZOPREVIR

REACTIONS (5)
  - Depression [None]
  - Dizziness [None]
  - Vertigo [None]
  - Hypersomnia [None]
  - Fatigue [None]

NARRATIVE: CASE EVENT DATE: 20171007
